FAERS Safety Report 13662716 (Version 1)
Quarter: 2017Q2

REPORT INFORMATION
  Report Type: Spontaneous
  Country: US (occurrence: US)
  Receive Date: 20170616
  Receipt Date: 20170616
  Transmission Date: 20170830
  Serious: Yes (Other)
  Sender: FDA-Public Use
  Company Number: None

PATIENT
  Age: 31 Year
  Sex: Female
  Weight: 65.25 kg

DRUGS (1)
  1. LEVOTHYROXINE. [Suspect]
     Active Substance: LEVOTHYROXINE
     Indication: THYROID DISORDER
     Route: 048
     Dates: start: 20160701, end: 20170501

REACTIONS (7)
  - Vulvovaginal dryness [None]
  - Constipation [None]
  - Abnormal faeces [None]
  - Lip dry [None]
  - Dry skin [None]
  - Hair texture abnormal [None]
  - Dry eye [None]

NARRATIVE: CASE EVENT DATE: 20161001
